FAERS Safety Report 8949398 (Version 1)
Quarter: 2012Q4

REPORT INFORMATION
  Report Type: Report from Study
  Country: BR (occurrence: BR)
  Receive Date: 20121206
  Receipt Date: 20121206
  Transmission Date: 20130627
  Serious: Yes (Other)
  Sender: FDA-Public Use
  Company Number: BR-ABBOTT-12P-020-1014744-00

PATIENT
  Sex: Female
  Weight: 60 kg

DRUGS (2)
  1. HUMIRA [Suspect]
     Indication: ANKYLOSING SPONDYLITIS
     Route: 058
     Dates: start: 2010
  2. HUMIRA [Suspect]

REACTIONS (4)
  - Cardiovascular disorder [Recovered/Resolved]
  - Pulmonary mass [Recovered/Resolved]
  - Weight decreased [Unknown]
  - Osteoarthritis [Not Recovered/Not Resolved]
